FAERS Safety Report 17751848 (Version 1)
Quarter: 2020Q2

REPORT INFORMATION
  Report Type: Spontaneous
  Country: US (occurrence: US)
  Receive Date: 20200506
  Receipt Date: 20200506
  Transmission Date: 20200714
  Serious: Yes (Death, Other)
  Sender: FDA-Public Use
  Company Number: US-PROGENICS PHARMACEUTICALS-2020PGE00004

PATIENT
  Age: 36 Year
  Sex: Male

DRUGS (1)
  1. AZEDRA [Suspect]
     Active Substance: IOBENGUANE I-131
     Dosage: UNK
     Dates: start: 20200422

REACTIONS (2)
  - Respiratory failure [Fatal]
  - Unevaluable event [Unknown]

NARRATIVE: CASE EVENT DATE: 20200422
